FAERS Safety Report 9619317 (Version 6)
Quarter: 2014Q1

REPORT INFORMATION
  Report Type: Spontaneous
  Country: JP (occurrence: JP)
  Receive Date: 20131014
  Receipt Date: 20140306
  Transmission Date: 20141002
  Serious: Yes (Hospitalization, Other)
  Sender: FDA-Public Use
  Company Number: JP-ROCHE-1288637

PATIENT
  Age: 78 Year
  Sex: Male

DRUGS (2)
  1. LUCENTIS [Suspect]
     Indication: AGE-RELATED MACULAR DEGENERATION
     Dosage: IN LEFT EYE, 10 TH INJECTION ON 26/SEP/2013??THERAPY START DATE 10/JAN/2012
     Route: 050
  2. ADONA [Concomitant]
     Route: 065
     Dates: start: 20130924, end: 20131008

REACTIONS (7)
  - Retinal haemorrhage [Recovering/Resolving]
  - Age-related macular degeneration [Unknown]
  - Blood glucose increased [Unknown]
  - Blood urea increased [Unknown]
  - Gamma-glutamyltransferase increased [Unknown]
  - Blood alkaline phosphatase increased [Unknown]
  - Visual acuity reduced [Unknown]
